FAERS Safety Report 8506899-1 (Version None)
Quarter: 2012Q3

REPORT INFORMATION
  Report Type: 
  Country: None (occurrence: None)
  Receive Date: 20120703
  Receipt Date: 20120621
  Transmission Date: 20120928
  Serious: Yes (Other)
  Sender: FDA-Public Use
  Company Number: 2012SP034968

PATIENT
  Sex: Female

DRUGS (1)
  1. NUVARING [Suspect]
     Indication: CONTRACEPTION
     Dates: start: 20050522

REACTIONS (3)
  - INTRACARDIAC THROMBUS [None]
  - MULTIPLE INJURIES [None]
  - MYOCARDIAL INFARCTION [None]
